FAERS Safety Report 9633882 (Version 1)
Quarter: 2013Q4

REPORT INFORMATION
  Report Type: Spontaneous
  Country: FR (occurrence: FR)
  Receive Date: 20131021
  Receipt Date: 20131021
  Transmission Date: 20140711
  Serious: Yes (Hospitalization)
  Sender: FDA-Public Use
  Company Number: FR-009507513-1310FRA005984

PATIENT
  Age: 29 Year
  Sex: Female
  Weight: 49 kg

DRUGS (2)
  1. IMPLANON [Suspect]
     Dosage: UNK
     Dates: start: 20080530
  2. SEROPLEX [Concomitant]

REACTIONS (7)
  - Device related infection [Unknown]
  - Device difficult to use [Not Recovered/Not Resolved]
  - Device dislocation [Unknown]
  - Device kink [Unknown]
  - Phlebitis [Unknown]
  - Incorrect drug administration duration [Unknown]
  - Amenorrhoea [Not Recovered/Not Resolved]
